FAERS Safety Report 10235612 (Version 1)
Quarter: 2014Q1

REPORT INFORMATION
  Report Type: Spontaneous
  Country: US (occurrence: None)
  Receive Date: 20140306
  Receipt Date: 20140306
  Transmission Date: 20141002
  Serious: Yes (Other)
  Sender: FDA-Public Use
  Company Number: 163-21880-13020719

PATIENT
  Age: 53 Year
  Sex: Male

DRUGS (3)
  1. REVLIMID (LENALIDOMIDE) (15 MILLIGRAM, CAPSULES) [Suspect]
     Indication: PLASMA CELL MYELOMA
     Dosage: 15 MG, 14 IN 21 D, PO
     Route: 048
     Dates: start: 201208
  2. VELCADE (BORTEZOMIB) (UNKNOWN) [Suspect]
     Indication: PRODUCT USED FOR UNKNOWN INDICATION
     Dosage: UNKNOWN- DISCONTINUED
  3. DEXAMETHASONE (DEXMETHASONE) [Concomitant]

REACTIONS (8)
  - Neuropathy peripheral [None]
  - Eye discharge [None]
  - Diarrhoea [None]
  - Depression [None]
  - Cough [None]
  - Sneezing [None]
  - Nausea [None]
  - Tremor [None]
